FAERS Safety Report 22680365 (Version 2)
Quarter: 2023Q4

REPORT INFORMATION
  Report Type: Spontaneous
  Country: US (occurrence: US)
  Receive Date: 20230707
  Receipt Date: 20231120
  Transmission Date: 20240110
  Serious: Yes (Other)
  Sender: FDA-Public Use
  Company Number: US-PFIZER INC-202300239137

PATIENT

DRUGS (2)
  1. DILTIAZEM HYDROCHLORIDE [Suspect]
     Active Substance: DILTIAZEM HYDROCHLORIDE
     Indication: Cardiac disorder
     Dosage: UNK
  2. METOPROLOL TARTRATE [Suspect]
     Active Substance: METOPROLOL TARTRATE
     Indication: Cardiac disorder
     Dosage: UNK

REACTIONS (1)
  - Sleep apnoea syndrome [Unknown]
